FAERS Safety Report 6796408-X (Version None)
Quarter: 2010Q2

REPORT INFORMATION
  Report Type: 
  Country: None (occurrence: None)
  Receive Date: 20100626
  Receipt Date: 20100617
  Transmission Date: 20101027
  Serious: Yes (Other)
  Sender: FDA-Public Use
  Company Number: US-ABBOTT-10P-163-0652609-00

PATIENT
  Sex: Male
  Weight: 112.59 kg

DRUGS (8)
  1. NIASPAN [Suspect]
     Indication: HYPERLIPIDAEMIA
     Dosage: AT BEDTIME
     Route: 048
     Dates: start: 20100527
  2. METOPROLOL TARTRATE [Concomitant]
     Indication: HYPERTENSION
     Route: 048
  3. SIMVASTATIN [Concomitant]
     Indication: HYPERLIPIDAEMIA
     Route: 048
  4. LISINOPRIL AND HYDROCHLOROTHIAZIDE [Concomitant]
     Indication: HYPERTENSION
     Dosage: 20/5MG
     Route: 048
  5. ACTOS [Concomitant]
     Indication: DIABETES MELLITUS
     Route: 048
  6. METFORMIN HCL [Concomitant]
     Indication: DIABETES MELLITUS
     Route: 048
  7. FENOFIBRATE [Concomitant]
     Indication: HYPERLIPIDAEMIA
     Route: 048
  8. ASPIRIN [Concomitant]
     Indication: DRUG USE FOR UNKNOWN INDICATION
     Route: 048

REACTIONS (2)
  - CORONARY ARTERY OCCLUSION [None]
  - FLUSHING [None]
